FAERS Safety Report 16451042 (Version 1)
Quarter: 2019Q3

REPORT INFORMATION
  Report Type: Spontaneous
  Country: US (occurrence: US)
  Receive Date: 20190618
  Receipt Date: 20190618
  Transmission Date: 20191004
  Serious: Yes (Hospitalization, Other)
  Sender: FDA-Public Use
  Company Number: None

PATIENT
  Age: 34 Year
  Sex: Female
  Weight: 65.7 kg

DRUGS (6)
  1. BABY ASPIRIN [Concomitant]
     Active Substance: ASPIRIN
  2. PRE-NATAL [Concomitant]
  3. MULTI-VITAMIN [Concomitant]
     Active Substance: .ALPHA.-TOCOPHEROL ACETATE, DL-\ASCORBIC ACID\CYANOCOBALAMIN\FLUORIDE ION\FOLIC ACID\NIACIN\PYRIDOXINE\RIBOFLAVIN\THIAMINE\VITAMIN A\VITAMIN D
  4. FIBER [Concomitant]
     Active Substance: PSYLLIUM HUSK
  5. LOVASTATIN. [Concomitant]
     Active Substance: LOVASTATIN
  6. CLOMID [Suspect]
     Active Substance: CLOMIPHENE CITRATE
     Indication: PLANNING TO BECOME PREGNANT

REACTIONS (5)
  - Retinal artery thrombosis [None]
  - Artificial insemination [None]
  - Retinal artery occlusion [None]
  - Blindness unilateral [None]
  - Sudden visual loss [None]

NARRATIVE: CASE EVENT DATE: 20190419
